FAERS Safety Report 7536093-2 (Version None)
Quarter: 2011Q2

REPORT INFORMATION
  Report Type: 
  Country: None (occurrence: None)
  Receive Date: 20110607
  Receipt Date: 20110607
  Transmission Date: 20111010
  Serious: Yes (Hospitalization)
  Sender: FDA-Public Use
  Company Number: None

PATIENT
  Sex: Female
  Weight: 55.3388 kg

DRUGS (2)
  1. FOSAMAX [Suspect]
     Indication: BONE DENSITY DECREASED
     Dosage: 70MG WEEKLY ORAL
     Route: 048
     Dates: start: 20020101, end: 20090201
  2. BONIVA [Suspect]
     Indication: BONE DENSITY DECREASED
     Dosage: 150MG MONTHLY ORAL
     Route: 048
     Dates: start: 20090201, end: 20100301

REACTIONS (1)
  - FEMUR FRACTURE [None]
